FAERS Safety Report 15223473 (Version 1)
Quarter: 2018Q3

REPORT INFORMATION
  Report Type: Spontaneous
  Country: US (occurrence: US)
  Receive Date: 20180705
  Receipt Date: 20180705
  Transmission Date: 20181010
  Serious: No
  Sender: FDA-Public Use
  Company Number: None

PATIENT
  Age: 23 Year
  Sex: Female
  Weight: 78.93 kg

DRUGS (2)
  1. ESTRADIOL TRANSDERMAL SYSTEM [Suspect]
     Active Substance: ESTRADIOL
     Indication: ARTIFICIAL MENOPAUSE
     Route: 062
     Dates: start: 20180529, end: 20180604
  2. ESTRADIOL TRANSDERMAL SYSTEM [Suspect]
     Active Substance: ESTRADIOL
     Indication: ENDOMETRIOSIS
     Dates: start: 20180604, end: 20180611

REACTIONS (3)
  - Pruritus [None]
  - Scab [None]
  - Scar [None]

NARRATIVE: CASE EVENT DATE: 20180522
